FAERS Safety Report 6615038-3 (Version None)
Quarter: 2010Q1

REPORT INFORMATION
  Report Type: 
  Country: None (occurrence: None)
  Receive Date: 20100305
  Receipt Date: 20100224
  Transmission Date: 20100710
  Serious: Yes (Other)
  Sender: FDA-Public Use
  Company Number: US-JNJFOC-20100205340

PATIENT
  Age: 40 Year
  Sex: Female

DRUGS (6)
  1. REMICADE [Suspect]
     Indication: PSORIATIC ARTHROPATHY
     Route: 042
  2. REMICADE [Suspect]
     Dosage: ON THERAPY FOR 33 WEEKS
     Route: 042
  3. REMICADE [Suspect]
     Indication: PSORIASIS
     Dosage: ON THERAPY FOR 33 WEEKS
     Route: 042
  4. REMICADE [Suspect]
     Route: 042
  5. METHOTREXATE [Concomitant]
     Indication: PSORIATIC ARTHROPATHY
  6. PREDNISONE [Concomitant]
     Indication: PSORIASIS

REACTIONS (3)
  - HISTOPLASMOSIS [None]
  - HYPERCALCAEMIA [None]
  - RENAL FAILURE [None]
